FAERS Safety Report 24004325 (Version 2)
Quarter: 2024Q3

REPORT INFORMATION
  Report Type: Report from Study
  Country: CO (occurrence: CO)
  Receive Date: 20240624
  Receipt Date: 20240822
  Transmission Date: 20241017
  Serious: Yes (Life-Threatening, Other)
  Sender: ROCHE
  Company Number: CO-ROCHE-10000001319

PATIENT

DRUGS (1)
  1. RITUXIMAB [Suspect]
     Active Substance: RITUXIMAB
     Indication: Rheumatic disorder
     Route: 042

REACTIONS (8)
  - Cytokine release syndrome [Unknown]
  - Hypersensitivity [Unknown]
  - Serum sickness [Unknown]
  - Hypogammaglobulinaemia [Unknown]
  - Lymphadenopathy [Unknown]
  - Lymphoid tissue hyperplasia [Unknown]
  - Bronchiectasis [Unknown]
  - Cystitis interstitial [Unknown]
